FAERS Safety Report 8881726 (Version 2)
Quarter: 2013Q1

REPORT INFORMATION
  Report Type: Spontaneous
  Country: CA (occurrence: CA)
  Receive Date: 20121105
  Receipt Date: 20130217
  Transmission Date: 20140127
  Serious: Yes (Life-Threatening, Hospitalization)
  Sender: FDA-Public Use
  Company Number: CA-JNJFOC-20121017635

PATIENT
  Sex: Male
  Weight: 80 kg

DRUGS (8)
  1. XARELTO [Suspect]
     Indication: EMBOLISM VENOUS
     Route: 048
     Dates: start: 20121013
  2. XARELTO [Suspect]
     Indication: THROMBOSIS PROPHYLAXIS
     Route: 048
     Dates: start: 20121013
  3. XARELTO [Suspect]
     Indication: KNEE ARTHROPLASTY
     Route: 048
     Dates: start: 20121013
  4. SENOKOT [Concomitant]
     Route: 065
  5. DILAUDID [Concomitant]
     Route: 065
  6. ISOPTIN [Concomitant]
     Route: 048
  7. VENTOLIN [Concomitant]
     Route: 065
  8. TYLENOL [Concomitant]
     Indication: PRODUCT USED FOR UNKNOWN INDICATION
     Route: 048

REACTIONS (2)
  - Pulmonary embolism [Recovering/Resolving]
  - Drug ineffective [Unknown]
